FAERS Safety Report 10409373 (Version 3)
Quarter: 2014Q4

REPORT INFORMATION
  Report Type: Report from Study
  Country: CO (occurrence: CO)
  Receive Date: 20140826
  Receipt Date: 20141016
  Transmission Date: 20150528
  Serious: Yes (Death, Hospitalization, Disabling, Other)
  Sender: FDA-Public Use
  Company Number: CO-AMGEN-COLSP2014061608

PATIENT
  Age: 63 Year
  Sex: Female

DRUGS (1)
  1. VECTIBIX [Suspect]
     Active Substance: PANITUMUMAB
     Indication: COLORECTAL CANCER METASTATIC
     Dosage: EVERY 15 DAYS
     Route: 042
     Dates: start: 20140522, end: 20140928

REACTIONS (5)
  - Investigation [Fatal]
  - Rash [Unknown]
  - Dry skin [Recovering/Resolving]
  - Death [Fatal]
  - Onychomycosis [Recovering/Resolving]

NARRATIVE: CASE EVENT DATE: 20140501
